FAERS Safety Report 15265343 (Version 3)
Quarter: 2018Q3

REPORT INFORMATION
  Report Type: Spontaneous
  Country: US (occurrence: US)
  Receive Date: 20180810
  Receipt Date: 20180913
  Transmission Date: 20181010
  Serious: Yes (Life-Threatening, Hospitalization, Other)
  Sender: FDA-Public Use
  Company Number: US-GILEAD-2018-0354153

PATIENT
  Age: 55 Year
  Sex: Male
  Weight: 61 kg

DRUGS (33)
  1. YESCARTA [Suspect]
     Active Substance: AXICABTAGENE CILOLEUCEL
     Indication: DIFFUSE LARGE B-CELL LYMPHOMA
     Dosage: 68 ML, ONCE
     Route: 042
     Dates: start: 20180730, end: 20180730
  2. MIDAZOLAM [Concomitant]
     Active Substance: MIDAZOLAM HYDROCHLORIDE
  3. TPN [Concomitant]
     Active Substance: AMINO ACIDS\DEXTROSE\ELECTROLYTES NOS\SOYBEAN OIL
  4. TYLENOL [Concomitant]
     Active Substance: ACETAMINOPHEN
  5. BENADRYL [Concomitant]
     Active Substance: DIPHENHYDRAMINE HYDROCHLORIDE
  6. VALACYCLOVIR                       /01269701/ [Concomitant]
     Active Substance: VALACYCLOVIR HYDROCHLORIDE
  7. CHLORHEXIDINE GLUCONATE. [Concomitant]
     Active Substance: CHLORHEXIDINE GLUCONATE
  8. CYCLOPHOSPHAMIDE. [Suspect]
     Active Substance: CYCLOPHOSPHAMIDE
     Indication: BONE MARROW CONDITIONING REGIMEN
     Dosage: 840 MG, QD
     Route: 042
     Dates: start: 20180725, end: 20180727
  9. PANTOPRAZOLE [Concomitant]
     Active Substance: PANTOPRAZOLE
  10. ALLOPURINOL. [Concomitant]
     Active Substance: ALLOPURINOL
  11. INSULIN NPH                        /01223208/ [Concomitant]
  12. MORPHINE [Concomitant]
     Active Substance: MORPHINE
  13. GABAPENTIN. [Concomitant]
     Active Substance: GABAPENTIN
  14. POTASSIUM PHOSPHATE                /00493501/ [Concomitant]
     Active Substance: POTASSIUM PHOSPHATE, DIBASIC
  15. MEPERIDINE                         /00016301/ [Concomitant]
     Active Substance: MEPERIDINE
  16. MIRALAX [Concomitant]
     Active Substance: POLYETHYLENE GLYCOL 3350
  17. FENTANYL. [Concomitant]
     Active Substance: FENTANYL
  18. FLUDARABINE [Suspect]
     Active Substance: FLUDARABINE PHOSPHATE
     Indication: BONE MARROW CONDITIONING REGIMEN
     Dosage: 50 MG, QD
     Route: 042
     Dates: start: 20180725, end: 20180727
  19. FLUCONAZOLE. [Concomitant]
     Active Substance: FLUCONAZOLE
  20. KEPPRA [Concomitant]
     Active Substance: LEVETIRACETAM
     Dosage: UNK
     Dates: start: 20180730
  21. HEPARIN [Concomitant]
     Active Substance: HEPARIN SODIUM
  22. CALCIUM GLUCONATE. [Concomitant]
     Active Substance: CALCIUM GLUCONATE
  23. MAGNESIUM SULFATE. [Concomitant]
     Active Substance: MAGNESIUM SULFATE
  24. ACYCLOVIR                          /00587301/ [Concomitant]
     Active Substance: ACYCLOVIR
  25. CEFEPIME [Concomitant]
     Active Substance: CEFEPIME HYDROCHLORIDE
  26. OXYCODONE [Concomitant]
     Active Substance: OXYCODONE
  27. VANCOMYCIN [Concomitant]
     Active Substance: VANCOMYCIN
  28. MICAFUNGIN [Concomitant]
     Active Substance: MICAFUNGIN
  29. ONDANSETRON [Concomitant]
     Active Substance: ONDANSETRON
  30. POTASSIUM CHLORIDE. [Concomitant]
     Active Substance: POTASSIUM CHLORIDE
  31. HUMALOG [Concomitant]
     Active Substance: INSULIN LISPRO
  32. CIPROFLOXACIN. [Concomitant]
     Active Substance: CIPROFLOXACIN
  33. ALBUTEROL                          /00139501/ [Concomitant]
     Active Substance: ALBUTEROL

REACTIONS (19)
  - Muscular weakness [Recovered/Resolved]
  - Sputum abnormal [Unknown]
  - Hypotension [Recovered/Resolved]
  - Seizure [Recovered/Resolved]
  - Pyrexia [Recovered/Resolved]
  - Hypoxia [Recovered/Resolved]
  - Pancytopenia [Not Recovered/Not Resolved]
  - Encephalopathy [Recovered/Resolved]
  - Muscular weakness [Recovered/Resolved]
  - Alanine aminotransferase increased [Recovered/Resolved]
  - Adrenal insufficiency [Not Recovered/Not Resolved]
  - Cytokine release syndrome [Recovered/Resolved]
  - Deep vein thrombosis [Not Recovered/Not Resolved]
  - Restlessness [Recovered/Resolved]
  - Hypoxia [Unknown]
  - Aspartate aminotransferase increased [Recovered/Resolved]
  - Aphasia [Recovered/Resolved]
  - Atrial fibrillation [Recovered/Resolved]
  - Acute respiratory distress syndrome [Recovered/Resolved]

NARRATIVE: CASE EVENT DATE: 20180730
